FAERS Safety Report 11618642 (Version 1)
Quarter: 2015Q4

REPORT INFORMATION
  Report Type: Spontaneous
  Country: IT (occurrence: IT)
  Receive Date: 20151012
  Receipt Date: 20151012
  Transmission Date: 20160304
  Serious: Yes (Hospitalization)
  Sender: FDA-Public Use
  Company Number: IT-ACCORD-034253

PATIENT
  Age: 43 Year
  Sex: Male

DRUGS (3)
  1. CISPLATIN TEVA [Concomitant]
     Active Substance: CISPLATIN
     Route: 042
     Dates: start: 20150625, end: 20150625
  2. DOCETAXEL ACCORD [Suspect]
     Active Substance: DOCETAXEL
     Indication: SQUAMOUS CELL CARCINOMA
     Route: 042
     Dates: start: 20150625, end: 20150625
  3. FLUOROURACIL TEVA [Concomitant]
     Active Substance: FLUOROURACIL
     Route: 042
     Dates: start: 20150625, end: 20150627

REACTIONS (6)
  - Oedema peripheral [Unknown]
  - Chest pain [Unknown]
  - Empyema [Unknown]
  - Pleural effusion [Unknown]
  - Fatigue [Unknown]
  - Dehydration [Unknown]

NARRATIVE: CASE EVENT DATE: 20150705
